FAERS Safety Report 12220028 (Version 4)
Quarter: 2016Q2

REPORT INFORMATION
  Report Type: Spontaneous
  Country: MX (occurrence: MX)
  Receive Date: 20160330
  Receipt Date: 20160608
  Transmission Date: 20160815
  Serious: Yes (Disabling, Other)
  Sender: FDA-Public Use
  Company Number: MX-ROCHE-1732319

PATIENT
  Age: 63 Year
  Sex: Male
  Weight: 80 kg

DRUGS (1)
  1. AVASTIN [Suspect]
     Active Substance: BEVACIZUMAB
     Indication: MACULAR OEDEMA
     Dosage: DOSE RESPONSE
     Route: 050
     Dates: start: 20160317, end: 20160317

REACTIONS (5)
  - Off label use [Unknown]
  - Suspected transmission of an infectious agent via product [Unknown]
  - Blindness [Unknown]
  - Endophthalmitis [Not Recovered/Not Resolved]
  - Suspected counterfeit product [Unknown]

NARRATIVE: CASE EVENT DATE: 20160317
